FAERS Safety Report 6024308-1 (Version None)
Quarter: 2008Q4

REPORT INFORMATION
  Report Type: 
  Country: None (occurrence: None)
  Receive Date: 20081231
  Receipt Date: 20081219
  Transmission Date: 20090506
  Serious: Yes (Other)
  Sender: FDA-Public Use
  Company Number: JP-PFIZER INC-2008100639

PATIENT

DRUGS (6)
  1. AROMASIN [Suspect]
     Dosage: 25 MG, 1X/DAY
     Route: 048
     Dates: start: 20081111, end: 20081126
  2. XELODA [Concomitant]
     Dosage: UNK
     Route: 048
  3. ALLORINE [Concomitant]
     Dosage: UNK
     Route: 048
  4. AMLODIPINE BESILATE [Concomitant]
     Dosage: UNK
     Route: 048
  5. FUROSEMIDE [Concomitant]
     Dosage: UNK
     Route: 048
  6. SPIRONOLACTONE [Concomitant]
     Dosage: UNK
     Route: 048

REACTIONS (1)
  - BLOOD GLUCOSE INCREASED [None]
